FAERS Safety Report 25507880 (Version 1)
Quarter: 2025Q3

REPORT INFORMATION
  Report Type: Spontaneous
  Country: EU (occurrence: EU)
  Receive Date: 20250703
  Receipt Date: 20250703
  Transmission Date: 20251020
  Serious: Yes (Hospitalization, Other)
  Sender: Haleon PLC
  Company Number: None

PATIENT
  Age: 73 Year
  Sex: Male

DRUGS (2)
  1. VOLTARENE (DICLOFENAC SODIUM) [Interacting]
     Active Substance: DICLOFENAC SODIUM
     Indication: Back pain
     Dates: start: 20250610, end: 20250624
  2. PIROXICAM [Interacting]
     Active Substance: PIROXICAM
     Indication: Back pain
     Route: 050
     Dates: start: 20250610, end: 20250624

REACTIONS (2)
  - Nephrotic syndrome [Not Recovered/Not Resolved]
  - Renal failure [Not Recovered/Not Resolved]

NARRATIVE: CASE EVENT DATE: 20250623
